FAERS Safety Report 16716371 (Version 1)
Quarter: 2019Q3

REPORT INFORMATION
  Report Type: Spontaneous
  Country: US (occurrence: US)
  Receive Date: 20190819
  Receipt Date: 20190819
  Transmission Date: 20191005
  Serious: Yes (Other)
  Sender: FDA-Public Use
  Company Number: US-BAYER-2019-149279

PATIENT
  Sex: Female

DRUGS (1)
  1. BAYER LOW DOSE [Suspect]
     Active Substance: ASPIRIN
     Dosage: 19 DF, 12 + 7 IN A DAY
     Dates: start: 20190808, end: 20190808

REACTIONS (3)
  - Intentional self-injury [None]
  - Intentional overdose [None]
  - Dyspnoea [None]

NARRATIVE: CASE EVENT DATE: 20190809
